FAERS Safety Report 4473009-X (Version None)
Quarter: 2004Q4

REPORT INFORMATION
  Report Type: 
  Country: None (occurrence: None)
  Receive Date: 20041013
  Receipt Date: 20040915
  Transmission Date: 20050328
  Serious: Yes (Death, Hospitalization)
  Sender: FDA-Public Use
  Company Number: PHBS2004JP12301

PATIENT
  Age: 54 Year
  Sex: Female
  Weight: 44 kg

DRUGS (7)
  1. NEORAL [Suspect]
     Indication: APLASTIC ANAEMIA
     Dosage: 100-300 MG/D
     Route: 048
     Dates: start: 19980801, end: 20031119
  2. NEORAL [Suspect]
     Dosage: 200 MG/DAY
     Route: 048
     Dates: start: 20040115, end: 20040213
  3. GRAN [Suspect]
     Indication: APLASTIC ANAEMIA
     Dosage: 300 UG/DAY
     Route: 058
     Dates: start: 19990521, end: 20030804
  4. CYANOCOBALAMIN [Concomitant]
     Indication: NEUROPATHY PERIPHERAL
     Dosage: 3 DF/DAY
     Route: 048
     Dates: start: 19991021, end: 20040214
  5. MUCOSTA [Concomitant]
     Indication: GASTRITIS
     Dosage: 3 DF/DAY
     Route: 048
     Dates: start: 19991021, end: 20040214
  6. URSO [Concomitant]
     Indication: CHOLELITHIASIS
     Dosage: 6 DF/DAY
     Route: 048
     Dates: start: 20010903, end: 20040214
  7. KAMAG G [Concomitant]
     Indication: GASTRITIS
     Dosage: 1.5 G/DAY
     Route: 048
     Dates: start: 19991021, end: 20030317

REACTIONS (9)
  - C-REACTIVE PROTEIN INCREASED [None]
  - EPSTEIN-BARR VIRUS INFECTION [None]
  - INFLUENZA LIKE ILLNESS [None]
  - LYMPHADENOPATHY [None]
  - LYMPHOPROLIFERATIVE DISORDER [None]
  - MULTI-ORGAN FAILURE [None]
  - PANCYTOPENIA [None]
  - PYREXIA [None]
  - SEPSIS [None]
